FAERS Safety Report 25418029 (Version 1)
Quarter: 2025Q2

REPORT INFORMATION
  Report Type: Spontaneous
  Country: US (occurrence: None)
  Receive Date: 20250609
  Receipt Date: 20250609
  Transmission Date: 20250717
  Serious: Yes (Other)
  Sender: FDA-CTU
  Company Number: None

PATIENT
  Age: 41 Year
  Sex: Male
  Weight: 109 kg

DRUGS (6)
  1. SOFOSBUVIR\VELPATASVIR [Suspect]
     Active Substance: SOFOSBUVIR\VELPATASVIR
     Indication: Product used for unknown indication
     Dosage: FREQUENCY : DAILY;?
     Route: 048
     Dates: start: 20250515, end: 20250515
  2. TAMSULOSIN [Concomitant]
     Active Substance: TAMSULOSIN
  3. DULOXETINE [Concomitant]
     Active Substance: DULOXETINE
  4. FAMOTIDINE [Concomitant]
     Active Substance: FAMOTIDINE
  5. MIRALAX [Concomitant]
     Active Substance: POLYETHYLENE GLYCOL 3350
  6. MELOXICAM [Concomitant]
     Active Substance: MELOXICAM

REACTIONS (2)
  - Swollen tongue [None]
  - Therapy cessation [None]

NARRATIVE: CASE EVENT DATE: 20250516
